FAERS Safety Report 24523874 (Version 5)
Quarter: 2025Q1

REPORT INFORMATION
  Report Type: Report from Study
  Country: TH (occurrence: TH)
  Receive Date: 20241018
  Receipt Date: 20250106
  Transmission Date: 20250408
  Serious: Yes (Other)
  Sender: BAYER HEALTHCARE PHARMACEUTICALS INC.
  Company Number: TH-BAYER-2024A147185

PATIENT
  Age: 64 Year
  Sex: Male

DRUGS (1)
  1. STIVARGA [Suspect]
     Active Substance: REGORAFENIB MONOHYDRATE
     Indication: Hepatocellular carcinoma
     Dosage: 80 MG, QD
     Route: 048
     Dates: start: 20240819, end: 20241015

REACTIONS (6)
  - Intra-abdominal fluid collection [None]
  - Liver disorder [Not Recovered/Not Resolved]
  - Full blood count decreased [Not Recovered/Not Resolved]
  - Muscular weakness [Not Recovered/Not Resolved]
  - Mobility decreased [Not Recovered/Not Resolved]
  - Off label use [None]

NARRATIVE: CASE EVENT DATE: 20240819
